FAERS Safety Report 7812913 (Version 3)
Quarter: 2013Q4

REPORT INFORMATION
  Report Type: Report from Study
  Country: FR (occurrence: FR)
  Receive Date: 20110215
  Receipt Date: 20131121
  Transmission Date: 20140711
  Serious: Yes (Other)
  Sender: FDA-Public Use
  Company Number: FR-NOVOPROD-322957

PATIENT
  Sex: Female
  Weight: 69 kg

DRUGS (1)
  1. LIRAGLUTIDE FLEXPEN [Suspect]
     Indication: TYPE 2 DIABETES MELLITUS
     Dosage: 1.2 MG, QD
     Route: 058
     Dates: start: 20101227, end: 20110124

REACTIONS (3)
  - Weight decreased [Recovering/Resolving]
  - Decreased appetite [Recovered/Resolved]
  - Nausea [Recovered/Resolved]
